FAERS Safety Report 25282033 (Version 2)
Quarter: 2025Q2

REPORT INFORMATION
  Report Type: Spontaneous
  Country: JP (occurrence: JP)
  Receive Date: 20250508
  Receipt Date: 20250517
  Transmission Date: 20250717
  Serious: Yes (Hospitalization, Other)
  Sender: ACCORD
  Company Number: JP-Accord-483184

PATIENT
  Age: 52 Year
  Sex: Male

DRUGS (5)
  1. AMITRIPTYLINE [Interacting]
     Active Substance: AMITRIPTYLINE
     Indication: Intercostal neuralgia
     Dosage: ON DAY 26 OF HOSPITALIZATION
  2. OXYCODONE HYDROCHLORIDE [Interacting]
     Active Substance: OXYCODONE HYDROCHLORIDE
     Indication: Back pain
     Dosage: (SLOW RELEASE)
  3. MIROGABALIN [Concomitant]
     Active Substance: MIROGABALIN
     Indication: Back pain
  4. AMITRIPTYLINE [Interacting]
     Active Substance: AMITRIPTYLINE
     Indication: Intercostal neuralgia
     Dosage: DECREASED
  5. OXYCODONE HYDROCHLORIDE [Interacting]
     Active Substance: OXYCODONE HYDROCHLORIDE
     Indication: Back pain

REACTIONS (2)
  - Serotonin syndrome [Recovered/Resolved]
  - Drug interaction [Unknown]
